FAERS Safety Report 4500167-0 (Version None)
Quarter: 2004Q4

REPORT INFORMATION
  Report Type: 
  Country: None (occurrence: None)
  Receive Date: 20041112
  Receipt Date: 19890113
  Transmission Date: 20050328
  Serious: Yes (Other)
  Sender: FDA-Public Use
  Company Number: 8976

PATIENT
  Age: 48 Year
  Sex: Female

DRUGS (5)
  1. TEGRETOL [Suspect]
     Indication: EPILEPSY
     Dosage: 200 MG, TID
     Route: 048
     Dates: start: 19861224, end: 19870301
  2. PHENOBARBITONE [Suspect]
     Indication: EPILEPSY
     Dosage: 30 MG, BID
     Route: 048
     Dates: start: 19640101
  3. PHENYTOIN [Suspect]
     Indication: EPILEPSY
     Dates: start: 19870301
  4. MYSOLINE [Concomitant]
  5. PREMPAK-C [Concomitant]

REACTIONS (18)
  - ABDOMINAL PAIN [None]
  - ALOPECIA [None]
  - ARTHRALGIA [None]
  - COLLAGEN DISORDER [None]
  - DYSPEPSIA [None]
  - EYE IRRITATION [None]
  - FATIGUE [None]
  - GINGIVAL BLEEDING [None]
  - GINGIVAL DISORDER [None]
  - GINGIVAL PAIN [None]
  - GINGIVAL SWELLING [None]
  - HEPATIC ENZYME INCREASED [None]
  - KERATOCONJUNCTIVITIS SICCA [None]
  - MOUTH ULCERATION [None]
  - PHARYNGEAL ULCERATION [None]
  - PHOTOSENSITIVE RASH [None]
  - RASH [None]
  - STEVENS-JOHNSON SYNDROME [None]
